FAERS Safety Report 7722818-X (Version None)
Quarter: 2011Q3

REPORT INFORMATION
  Report Type: 
  Country: None (occurrence: None)
  Receive Date: 20110901
  Receipt Date: 20110826
  Transmission Date: 20111222
  Serious: No
  Sender: FDA-Public Use
  Company Number: US-BIOGENIDEC-2010BI015500

PATIENT
  Sex: Female

DRUGS (1)
  1. TYSABRI [Suspect]
     Indication: MULTIPLE SCLEROSIS
     Route: 042
     Dates: start: 20090310

REACTIONS (7)
  - DIZZINESS [None]
  - ASTHENIA [None]
  - POOR DENTAL CONDITION [None]
  - TOOTHACHE [None]
  - DENTAL CARIES [None]
  - TOOTH ABSCESS [None]
  - HEADACHE [None]
